FAERS Safety Report 13630902 (Version 1)
Quarter: 2017Q2

REPORT INFORMATION
  Report Type: Spontaneous
  Country: CA (occurrence: CA)
  Receive Date: 20170608
  Receipt Date: 20170608
  Transmission Date: 20170830
  Serious: Yes (Hospitalization)
  Sender: FDA-Public Use
  Company Number: CA-GEHC-2017CSU001561

PATIENT

DRUGS (1)
  1. OMNIPAQUE [Suspect]
     Active Substance: IOHEXOL
     Indication: PRODUCT USED FOR UNKNOWN INDICATION
     Dosage: 90 ML, SINGLE
     Route: 065
     Dates: start: 20170531, end: 20170531

REACTIONS (8)
  - Pruritus generalised [Unknown]
  - Ocular hyperaemia [Unknown]
  - Hypoxia [Unknown]
  - Tongue erythema [Unknown]
  - Eye oedema [Unknown]
  - Disorientation [Unknown]
  - Dyspnoea [Unknown]
  - Swollen tongue [Unknown]

NARRATIVE: CASE EVENT DATE: 20170531
